FAERS Safety Report 4443047-1 (Version None)
Quarter: 2004Q3

REPORT INFORMATION
  Report Type: 
  Country: None (occurrence: None)
  Receive Date: 20040903
  Receipt Date: 20040629
  Transmission Date: 20050211
  Serious: Yes (Other)
  Sender: FDA-Public Use
  Company Number: 2004UW13467

PATIENT
  Age: 76 Year
  Sex: Male
  Weight: 99.3377 kg

DRUGS (6)
  1. CRESTOR [Suspect]
     Indication: BLOOD CHOLESTEROL INCREASED
     Dosage: 10 MG QD PO
     Route: 048
  2. MEDICATIONS FOR HIGH BLOOD PRESSURE [Concomitant]
  3. MEDICATIONS FOR HIGH CHOLSTEROL [Concomitant]
  4. HEART MEDICATION [Concomitant]
  5. ARRHYTHMIA MEDICATION [Concomitant]
  6. MEDICATION FOR COPD [Concomitant]

REACTIONS (1)
  - DRY MOUTH [None]
